FAERS Safety Report 23480561 (Version 1)
Quarter: 2024Q1

REPORT INFORMATION
  Report Type: Report from Study
  Country: CA (occurrence: None)
  Receive Date: 20240205
  Receipt Date: 20240205
  Transmission Date: 20240410
  Serious: Yes (Death, Other)
  Sender: FDA-Public Use
  Company Number: 2024A026983

PATIENT
  Sex: Female

DRUGS (5)
  1. TEZSPIRE [Suspect]
     Active Substance: TEZEPELUMAB-EKKO
     Indication: Asthma
     Route: 058
     Dates: start: 20230403, end: 20240119
  2. BREO ELLIPTA [Concomitant]
     Active Substance: FLUTICASONE FUROATE\VILANTEROL TRIFENATATE
     Dosage: 200/25 MCG 1 INH AM
  3. SPIRIVA RESPIMAT [Concomitant]
     Active Substance: TIOTROPIUM BROMIDE
     Dosage: 2.5 MCG 2 INH AM
  4. VENTOLIN [Concomitant]
     Active Substance: ALBUTEROL SULFATE
     Dosage: APO-SALVENT (SALBUTAMOL) 100 MCG 2 INH QID IF NEED
  5. NUCALA [Concomitant]
     Active Substance: MEPOLIZUMAB
     Dosage: EVERY 4 WEEKS

REACTIONS (2)
  - Myocardial infarction [Fatal]
  - Pulmonary thrombosis [Fatal]
